FAERS Safety Report 9078919 (Version 1)
Quarter: 2013Q1

REPORT INFORMATION
  Report Type: Report from Study
  Country: US (occurrence: US)
  Receive Date: 20130130
  Receipt Date: 20130130
  Transmission Date: 20140127
  Serious: No
  Sender: FDA-Public Use
  Company Number: US-ABBOTT-12P-163-0956663-00

PATIENT
  Age: 53 Year
  Sex: Female

DRUGS (10)
  1. HUMIRA 40 MG/0.8 ML PEN [Suspect]
     Indication: PSORIASIS
     Dosage: ON DAY ONE
     Dates: start: 20120702, end: 20120702
  2. HUMIRA 40 MG/0.8 ML PEN [Suspect]
     Dosage: ON DAY EIGHT
  3. ABILIFY [Concomitant]
     Indication: BIPOLAR DISORDER
     Dosage: DAILY
  4. CITALOPRAM [Concomitant]
     Indication: BIPOLAR DISORDER
     Dosage: DAILY
  5. OXCARBAZEPINE [Concomitant]
     Indication: AFFECTIVE DISORDER
  6. HYDROXIZINE [Concomitant]
     Indication: ANXIETY
  7. SYMBICORT [Concomitant]
     Indication: ASTHMA
  8. PROVENTIL [Concomitant]
     Indication: PRODUCT USED FOR UNKNOWN INDICATION
     Dosage: RESCUE INHALER
  9. ZOLPIDEM TARTRATE [Concomitant]
     Indication: INSOMNIA
  10. DICLOFENAC SODIUM [Concomitant]
     Indication: BURSITIS

REACTIONS (1)
  - Diarrhoea [Recovering/Resolving]
